FAERS Safety Report 13334479 (Version 2)
Quarter: 2017Q2

REPORT INFORMATION
  Report Type: Spontaneous
  Country: US (occurrence: US)
  Receive Date: 20170314
  Receipt Date: 20170523
  Transmission Date: 20170830
  Serious: No
  Sender: FDA-Public Use
  Company Number: US-JNJFOC-20170200670

PATIENT
  Age: 74 Year
  Sex: Female
  Weight: 60 kg

DRUGS (5)
  1. TRIAMTEREEN [Concomitant]
     Active Substance: TRIAMTERENE
  2. MULTIVITAMINS [Concomitant]
     Active Substance: VITAMINS
  3. ESTROGEL [Concomitant]
     Active Substance: ESTRADIOL
  4. ASPIRIN. [Concomitant]
     Active Substance: ASPIRIN
  5. IMBRUVICA [Suspect]
     Active Substance: IBRUTINIB
     Indication: CHRONIC LYMPHOCYTIC LEUKAEMIA
     Route: 048
     Dates: start: 20161202, end: 20170209

REACTIONS (4)
  - Liver function test abnormal [Recovered/Resolved]
  - White blood cell count increased [Recovered/Resolved]
  - Back pain [Recovered/Resolved]
  - Musculoskeletal pain [Recovered/Resolved]

NARRATIVE: CASE EVENT DATE: 20170101
